FAERS Safety Report 16157233 (Version 1)
Quarter: 2019Q2

REPORT INFORMATION
  Report Type: Spontaneous
  Country: US (occurrence: US)
  Receive Date: 20190228
  Receipt Date: 20190228
  Transmission Date: 20190711
  Serious: Yes (Hospitalization)
  Sender: FDA-Public Use
  Company Number: None

PATIENT
  Age: 74 Year
  Sex: Male
  Weight: 61.69 kg

DRUGS (10)
  1. OMEPRAZOLE. [Concomitant]
     Active Substance: OMEPRAZOLE
  2. ACETAMINOPHEN. [Concomitant]
     Active Substance: ACETAMINOPHEN
  3. LORAZEPAM. [Concomitant]
     Active Substance: LORAZEPAM
  4. JADENU [Suspect]
     Active Substance: DEFERASIROX
     Indication: HAEMOCHROMATOSIS
     Route: 048
     Dates: start: 20170425
  5. NUVIGIL [Concomitant]
     Active Substance: ARMODAFINIL
  6. PAROXETINE. [Concomitant]
     Active Substance: PAROXETINE
  7. PREDNISONE. [Concomitant]
     Active Substance: PREDNISONE
  8. NEUPOGEN [Concomitant]
     Active Substance: FILGRASTIM
  9. PROCRIT [Concomitant]
     Active Substance: ERYTHROPOIETIN
  10. TEMAZEPAM. [Concomitant]
     Active Substance: TEMAZEPAM

REACTIONS (2)
  - Therapy cessation [None]
  - Serum ferritin increased [None]
